FAERS Safety Report 8121657-8 (Version None)
Quarter: 2012Q1

REPORT INFORMATION
  Report Type: 
  Country: None (occurrence: None)
  Receive Date: 20120208
  Receipt Date: 20120208
  Transmission Date: 20120608
  Serious: Yes (Other)
  Sender: FDA-Public Use
  Company Number: None

PATIENT
  Age: 31 Year
  Sex: Male
  Weight: 88.45 kg

DRUGS (1)
  1. PROPECIA [Suspect]
     Dosage: 1.0 MG
     Dates: start: 20120118, end: 20120201

REACTIONS (3)
  - SEXUAL DYSFUNCTION [None]
  - SUICIDAL IDEATION [None]
  - DEPRESSION [None]
